FAERS Safety Report 15538903 (Version 1)
Quarter: 2018Q4

REPORT INFORMATION
  Report Type: Spontaneous
  Country: US (occurrence: US)
  Receive Date: 20181022
  Receipt Date: 20181022
  Transmission Date: 20190205
  Serious: No
  Sender: FDA-Public Use
  Company Number: US-SA-2018SA235698

PATIENT
  Age: 81 Year
  Sex: Male

DRUGS (1)
  1. SELSUN BLUE [Suspect]
     Active Substance: SELENIUM SULFIDE
     Indication: DANDRUFF
     Dosage: UNK
     Dates: start: 201806, end: 20180823

REACTIONS (8)
  - Pruritus [Recovered/Resolved]
  - Erythema [Unknown]
  - Xerosis [Unknown]
  - Rash [Unknown]
  - Dry skin [Unknown]
  - Seborrhoeic dermatitis [Unknown]
  - Skin exfoliation [Unknown]
  - Drug ineffective [Unknown]
